FAERS Safety Report 8490663-6 (Version None)
Quarter: 2012Q3

REPORT INFORMATION
  Report Type: 
  Country: None (occurrence: None)
  Receive Date: 20120705
  Receipt Date: 20120626
  Transmission Date: 20120928
  Serious: Yes (Death)
  Sender: FDA-Public Use
  Company Number: LB-CELGENEUS-093-21880-12022690

PATIENT
  Sex: Male

DRUGS (9)
  1. ASPIRIN [Concomitant]
     Indication: CORONARY ARTERY DISEASE
     Dosage: 5 MILLIGRAM
     Route: 065
     Dates: start: 20090101, end: 20120201
  2. BACTRIM [Concomitant]
     Route: 065
  3. ALLOPURINOL [Concomitant]
     Dosage: 100 MILLIGRAM
     Route: 065
     Dates: start: 20090101, end: 20120101
  4. REVLIMID [Suspect]
     Indication: MULTIPLE MYELOMA
     Dosage: 10 MILLIGRAM
     Route: 048
     Dates: start: 20111028, end: 20120119
  5. ADALAT [Concomitant]
     Indication: HYPERTENSION
     Dosage: 30 MILLIGRAM
     Route: 065
     Dates: start: 20090101, end: 20100101
  6. RAMIPRIL [Concomitant]
     Indication: HYPERTENSION
     Route: 065
     Dates: start: 20110101, end: 20110909
  7. ZOMETA [Concomitant]
     Indication: MULTIPLE MYELOMA
     Route: 065
     Dates: start: 20100201, end: 20120201
  8. VALTREX [Concomitant]
     Indication: ANTIVIRAL PROPHYLAXIS
     Route: 065
     Dates: start: 20100101, end: 20120201
  9. CONCOR [Concomitant]
     Indication: HYPERTENSION
     Dosage: 5 MILLIGRAM
     Route: 065
     Dates: start: 20090101, end: 20120201

REACTIONS (1)
  - MULTIPLE MYELOMA [None]
